FAERS Safety Report 18135456 (Version 2)
Quarter: 2020Q3

REPORT INFORMATION
  Report Type: Spontaneous
  Country: FR (occurrence: FR)
  Receive Date: 20200811
  Receipt Date: 20200818
  Transmission Date: 20201103
  Serious: Yes (Other)
  Sender: FDA-Public Use
  Company Number: FR-GLAXOSMITHKLINE-A0831231A

PATIENT
  Age: 65 Year
  Sex: Male

DRUGS (1)
  1. SORIATANE [Suspect]
     Active Substance: ACITRETIN
     Indication: PALMOPLANTAR KERATODERMA
     Dosage: 25 MG, 1D
     Route: 048

REACTIONS (1)
  - Pancreatitis [Unknown]
